FAERS Safety Report 15854278 (Version 1)
Quarter: 2019Q1

REPORT INFORMATION
  Report Type: Spontaneous
  Country: CA (occurrence: CA)
  Receive Date: 20190121
  Receipt Date: 20190121
  Transmission Date: 20190417
  Serious: Yes (Disabling)
  Sender: FDA-Public Use
  Company Number: None

PATIENT
  Age: 39 Year
  Sex: Male
  Weight: 74.25 kg

DRUGS (1)
  1. BUDESONIDE TEVA [Suspect]
     Active Substance: BUDESONIDE
     Indication: POLYPECTOMY
     Dosage: ?          QUANTITY:1 AMPUL-NEBULE;OTHER ROUTE:NOSE FLUSH?
     Dates: start: 20181022, end: 20190110

REACTIONS (2)
  - Glaucoma [None]
  - Vision blurred [None]

NARRATIVE: CASE EVENT DATE: 20190113
